FAERS Safety Report 9958596 (Version 1)
Quarter: 2014Q1

REPORT INFORMATION
  Report Type: Spontaneous
  Country: US (occurrence: None)
  Receive Date: 20140124
  Receipt Date: 20140124
  Transmission Date: 20141002
  Serious: Yes (Hospitalization)
  Sender: FDA-Public Use
  Company Number: 2011AP000851

PATIENT
  Age: 51 Year
  Sex: Male

DRUGS (7)
  1. LITHIUM CARBONATE CAPSULES [Suspect]
     Indication: BIPOLAR DISORDER
     Dosage: 450 MG; AM
  2. DULOXETINE [Concomitant]
  3. HALOPERIDOL [Concomitant]
  4. ARIPIPRAZOLE [Concomitant]
  5. TRAZODONE [Concomitant]
  6. OXYCODONE [Concomitant]
  7. PARACETAMOL [Concomitant]

REACTIONS (2)
  - Toxicity to various agents [None]
  - Confusional state [None]
